FAERS Safety Report 6311823-6 (Version None)
Quarter: 2009Q3

REPORT INFORMATION
  Report Type: 
  Country: None (occurrence: None)
  Receive Date: 20090817
  Receipt Date: 20090813
  Transmission Date: 20100115
  Serious: Yes (Life-Threatening, Hospitalization)
  Sender: FDA-Public Use
  Company Number: FR-ASTRAZENECA-2009SE07914

PATIENT
  Age: 47 Year
  Sex: Male

DRUGS (5)
  1. NEXIUM [Suspect]
     Route: 048
     Dates: end: 20090615
  2. BRISTOPEN [Suspect]
     Route: 042
     Dates: start: 20090527, end: 20090615
  3. RIFAMPICIN [Suspect]
     Route: 042
     Dates: start: 20090527, end: 20090616
  4. HEPARIN [Concomitant]
     Route: 042
     Dates: start: 20090608, end: 20090615
  5. AMLOR [Concomitant]
     Route: 065
     Dates: start: 20090527

REACTIONS (3)
  - AGRANULOCYTOSIS [None]
  - HYPERTHERMIA [None]
  - RASH ERYTHEMATOUS [None]
